FAERS Safety Report 21095566 (Version 8)
Quarter: 2022Q4

REPORT INFORMATION
  Report Type: Spontaneous
  Country: US (occurrence: US)
  Receive Date: 20220718
  Receipt Date: 20221026
  Transmission Date: 20230112
  Serious: No
  Sender: FDA-Public Use
  Company Number: US-PFIZER INC-PV202200024515

PATIENT
  Age: 76 Year
  Sex: Female
  Weight: 79.38 kg

DRUGS (1)
  1. IBRANCE [Suspect]
     Active Substance: PALBOCICLIB
     Indication: Bone cancer
     Dosage: 125 MG

REACTIONS (3)
  - Off label use [Unknown]
  - Stomatitis [Recovering/Resolving]
  - Condition aggravated [Recovering/Resolving]
